FAERS Safety Report 8424985-1 (Version None)
Quarter: 2012Q2

REPORT INFORMATION
  Report Type: 
  Country: None (occurrence: None)
  Receive Date: 20120611
  Receipt Date: 20120531
  Transmission Date: 20120825
  Serious: Yes (Other)
  Sender: FDA-Public Use
  Company Number: US-BRISTOL-MYERS SQUIBB COMPANY-16650368

PATIENT
  Age: 59 Year
  Sex: Female
  Weight: 98 kg

DRUGS (2)
  1. AVAPRO [Suspect]
     Indication: HYPERTENSION
  2. CELEBREX [Concomitant]

REACTIONS (3)
  - COUGH [None]
  - OESOPHAGEAL DISORDER [None]
  - HERNIA [None]
